FAERS Safety Report 16761082 (Version 1)
Quarter: 2019Q3

REPORT INFORMATION
  Report Type: Spontaneous
  Country: US (occurrence: US)
  Receive Date: 20190830
  Receipt Date: 20190830
  Transmission Date: 20191005
  Serious: No
  Sender: FDA-Public Use
  Company Number: US-ANIPHARMA-2018-US-015499

PATIENT
  Sex: Female

DRUGS (2)
  1. IBRANCE [Suspect]
     Active Substance: PALBOCICLIB
     Dosage: 125MG PO DAILY
     Route: 048
     Dates: start: 20180701
  2. ANASTROZOLE. [Suspect]
     Active Substance: ANASTROZOLE
     Indication: BREAST CANCER
     Dosage: UNSPECIFIED DAILY
     Route: 048

REACTIONS (3)
  - Fatigue [Recovering/Resolving]
  - Neutropenia [Unknown]
  - Tumour marker increased [Not Recovered/Not Resolved]
